FAERS Safety Report 12447342 (Version 2)
Quarter: 2016Q3

REPORT INFORMATION
  Report Type: Spontaneous
  Country: JP (occurrence: JP)
  Receive Date: 20160608
  Receipt Date: 20160711
  Transmission Date: 20161109
  Serious: Yes (Hospitalization, Other)
  Sender: FDA-Public Use
  Company Number: JP-GLAXOSMITHKLINE-JP2016GSK080779

PATIENT
  Age: 75 Year
  Sex: Male
  Weight: 56 kg

DRUGS (10)
  1. EQUA [Suspect]
     Active Substance: VILDAGLIPTIN
     Indication: TYPE 2 DIABETES MELLITUS
     Dosage: 50 MG, BID
     Route: 048
     Dates: start: 20130624, end: 20140519
  2. PREDNISOLONE. [Concomitant]
     Active Substance: PREDNISOLONE
     Dosage: UNK
  3. DIGOSIN [Concomitant]
     Active Substance: DIGOXIN
     Dosage: UNK
  4. ARTIST [Concomitant]
     Active Substance: CARVEDILOL
     Dosage: UNK
  5. BLOPRESS [Concomitant]
     Active Substance: CANDESARTAN CILEXETIL
     Dosage: UNK
  6. NORVASC [Concomitant]
     Active Substance: AMLODIPINE BESYLATE
     Dosage: UNK
  7. VOLTAREN [Suspect]
     Active Substance: DICLOFENAC SODIUM
     Indication: OSTEOARTHRITIS
     Dosage: 37.5 MG, QD
     Route: 048
  8. GLUFAST [Concomitant]
     Active Substance: MITIGLINIDE
     Dosage: UNK
     Dates: start: 20140428
  9. PLETAAL [Concomitant]
     Active Substance: CILOSTAZOL
     Dosage: UNK
  10. WARFARIN [Concomitant]
     Active Substance: WARFARIN
     Dosage: UNK

REACTIONS (7)
  - Perivascular dermatitis [Unknown]
  - Pruritus [Unknown]
  - Pemphigoid [Recovering/Resolving]
  - Skin ulcer [Unknown]
  - Skin erosion [Unknown]
  - Blister [Unknown]
  - Blood blister [Unknown]

NARRATIVE: CASE EVENT DATE: 20140127
